FAERS Safety Report 18871395 (Version 1)
Quarter: 2021Q1

REPORT INFORMATION
  Report Type: Spontaneous
  Country: SN (occurrence: SN)
  Receive Date: 20210210
  Receipt Date: 20210210
  Transmission Date: 20210420
  Serious: Yes (Hospitalization, Other)
  Sender: FDA-Public Use
  Company Number: NVSC2021SN022589

PATIENT
  Age: 80 Year
  Sex: Male

DRUGS (1)
  1. UPERIO [Suspect]
     Active Substance: SACUBITRIL\VALSARTAN
     Indication: CARDIAC FAILURE
     Dosage: 0.5 DF (50 MG), QD
     Route: 048

REACTIONS (4)
  - Hypotension [Recovering/Resolving]
  - Incorrect dose administered [Recovering/Resolving]
  - Wrong technique in product usage process [Recovering/Resolving]
  - Intentional product misuse [Recovering/Resolving]
